FAERS Safety Report 23910062 (Version 1)
Quarter: 2024Q2

REPORT INFORMATION
  Report Type: Report from Study
  Country: US (occurrence: US)
  Receive Date: 20240528
  Receipt Date: 20240528
  Transmission Date: 20240717
  Serious: Yes (Hospitalization)
  Sender: FDA-Public Use
  Company Number: US-PFIZER INC-PV202400068994

PATIENT
  Age: 68 Year
  Sex: Male

DRUGS (1)
  1. VYNDAMAX [Suspect]
     Active Substance: TAFAMIDIS
     Indication: Cardiac amyloidosis
     Dosage: 61 MG TAKE ONE CAPSULE BY MOUTH ONE TIME A DAY
     Route: 048
     Dates: start: 2020

REACTIONS (2)
  - Escherichia infection [Unknown]
  - Urinary tract infection [Unknown]
